FAERS Safety Report 23666056 (Version 1)
Quarter: 2024Q1

REPORT INFORMATION
  Report Type: Spontaneous
  Country: US (occurrence: US)
  Receive Date: 20240323
  Receipt Date: 20240323
  Transmission Date: 20240409
  Serious: No
  Sender: FDA-Public Use
  Company Number: US-002147023-NVSC2024US061901

PATIENT
  Weight: 138.78 kg

DRUGS (1)
  1. VALSARTAN [Suspect]
     Active Substance: VALSARTAN
     Indication: Blood pressure management
     Dosage: UNK UNK, QD (FOR ABOUT A YEAR AND A HALF)
     Route: 065

REACTIONS (2)
  - Skin disorder [Unknown]
  - Dental caries [Unknown]
